FAERS Safety Report 9190932 (Version 1)
Quarter: 2013Q1

REPORT INFORMATION
  Report Type: Report from Study
  Country: US (occurrence: US)
  Receive Date: 20130326
  Receipt Date: 20130326
  Transmission Date: 20140127
  Serious: Yes (Hospitalization, Other)
  Sender: FDA-Public Use
  Company Number: US-ROCHE-1204670

PATIENT
  Sex: 0

DRUGS (5)
  1. CAPECITABINE [Suspect]
     Indication: ANAL CANCER
     Route: 065
  2. CISPLATIN [Suspect]
     Indication: ANAL CANCER
     Route: 065
  3. OXALIPLATIN [Suspect]
     Indication: ANAL CANCER
     Route: 065
  4. 5-FLUOROURACIL [Suspect]
     Indication: ANAL CANCER
     Route: 065
  5. MITOMYCIN C [Suspect]
     Indication: ANAL CANCER
     Route: 065

REACTIONS (14)
  - Herpes zoster [Unknown]
  - Cellulitis [Unknown]
  - Dehydration [Unknown]
  - Diarrhoea [Unknown]
  - Gastrointestinal toxicity [Unknown]
  - Skin toxicity [Unknown]
  - Nausea [Unknown]
  - Toxicity to various agents [Unknown]
  - Anorectal disorder [Unknown]
  - Erectile dysfunction [Unknown]
  - Dyspareunia [Unknown]
  - Haematotoxicity [Unknown]
  - Faecal incontinence [Unknown]
  - Haematochezia [Unknown]
